FAERS Safety Report 6370731-5 (Version None)
Quarter: 2009Q3

REPORT INFORMATION
  Report Type: 
  Country: None (occurrence: None)
  Receive Date: 20090923
  Receipt Date: 20070604
  Transmission Date: 20100115
  Serious: Yes (Hospitalization)
  Sender: FDA-Public Use
  Company Number: US-ASTRAZENECA-2006UW25390

PATIENT
  Age: 37 Year
  Sex: Female

DRUGS (18)
  1. SEROQUEL [Suspect]
     Indication: DEPRESSION
     Dosage: 100 - 1500 MG FLUCTUATING
     Route: 048
     Dates: start: 19991117
  2. SEROQUEL [Suspect]
     Dosage: 200MG-400MG
     Route: 048
     Dates: start: 20000801, end: 20051201
  3. CYMBALTA [Concomitant]
     Dates: start: 20050101
  4. EFFEXOR XR [Concomitant]
     Dosage: 50 - 225 MG FLUCTUATING
     Dates: start: 19950108
  5. NORVASC [Concomitant]
     Dosage: 2.5 - 10 MG FLUCTUATING
     Dates: start: 19980626
  6. ASPIRIN [Concomitant]
     Dosage: 81 - 162 MG
     Dates: start: 19980626
  7. LORAZEPAM [Concomitant]
     Dosage: 0.5 - 1 MG
     Dates: start: 19990601
  8. COGENTIN [Concomitant]
     Dates: start: 19980623
  9. HALDOL [Concomitant]
     Dosage: 1 - 10 MG
     Dates: start: 19950117
  10. HALDOL [Concomitant]
     Dates: start: 20000101
  11. CYCLOBENZAPRINE [Concomitant]
     Dates: start: 19980626
  12. DIOVAN [Concomitant]
     Dates: start: 19990601
  13. LEVSIN [Concomitant]
     Dates: start: 19990601
  14. DETROL [Concomitant]
     Dates: start: 19990601
  15. PREDNISONE [Concomitant]
     Dosage: 1 - 5 MG
     Dates: start: 20000425
  16. DYAZIDE [Concomitant]
     Dosage: 37.5 / 25 MG
     Dates: start: 19980626
  17. ATIVAN [Concomitant]
     Dosage: 2 MG/ML
     Dates: start: 19980623
  18. WELLBUTRIN [Concomitant]
     Dates: start: 19950117

REACTIONS (3)
  - DIABETES MELLITUS [None]
  - SUICIDE ATTEMPT [None]
  - TYPE 2 DIABETES MELLITUS [None]
